FAERS Safety Report 7347613-5 (Version None)
Quarter: 2011Q1

REPORT INFORMATION
  Report Type: 
  Country: None (occurrence: None)
  Receive Date: 20110311
  Receipt Date: 20110304
  Transmission Date: 20110831
  Serious: Yes (Hospitalization, Other)
  Sender: FDA-Public Use
  Company Number: JP-ABBOTT-11P-087-0709162-00

PATIENT
  Sex: Male

DRUGS (2)
  1. HUMIRA [Suspect]
     Indication: CROHN'S DISEASE
     Route: 058
     Dates: start: 20101027
  2. BEPOTASTINE BESILATE [Concomitant]
     Indication: RHINITIS ALLERGIC
     Dosage: 20MG DAILY

REACTIONS (2)
  - POSTOPERATIVE WOUND INFECTION [None]
  - ANAL STENOSIS [None]
